FAERS Safety Report 15740460 (Version 1)
Quarter: 2018Q4

REPORT INFORMATION
  Report Type: Spontaneous
  Country: IE (occurrence: IE)
  Receive Date: 20181219
  Receipt Date: 20181219
  Transmission Date: 20190205
  Serious: Yes (Other)
  Sender: FDA-Public Use
  Company Number: IE-PFIZER INC-2018513867

PATIENT
  Age: 22 Year
  Sex: Female
  Weight: 55 kg

DRUGS (2)
  1. CYTOTEC [Suspect]
     Active Substance: MISOPROSTOL
     Indication: ABORTION SPONTANEOUS
  2. CYTOTEC [Suspect]
     Active Substance: MISOPROSTOL
     Indication: PROPHYLAXIS
     Dosage: 1 DOSE
     Route: 067
     Dates: start: 20181109, end: 20181109

REACTIONS (4)
  - Vaginal haemorrhage [Unknown]
  - Pain [Unknown]
  - Product dispensing error [Unknown]
  - Foetal death [Unknown]

NARRATIVE: CASE EVENT DATE: 20181109
